FAERS Safety Report 5757071-X (Version None)
Quarter: 2008Q2

REPORT INFORMATION
  Report Type: 
  Country: None (occurrence: None)
  Receive Date: 20080603
  Receipt Date: 20080521
  Transmission Date: 20081010
  Serious: Yes (Hospitalization)
  Sender: FDA-Public Use
  Company Number: B0522123A

PATIENT
  Age: 74 Year
  Sex: Male

DRUGS (11)
  1. REQUIP [Suspect]
     Indication: PARKINSON'S DISEASE
     Dosage: .5MG THREE TIMES PER DAY
     Route: 048
     Dates: start: 20071212, end: 20071230
  2. MODOPAR [Suspect]
     Indication: PARKINSON'S DISEASE
     Dosage: 1CAP THREE TIMES PER DAY
     Route: 048
     Dates: start: 20071221, end: 20071230
  3. MOTILIUM [Suspect]
     Indication: DRUG USE FOR UNKNOWN INDICATION
     Dosage: 1UNIT THREE TIMES PER DAY
     Route: 048
     Dates: start: 20071221, end: 20071230
  4. TRAMADOL HCL [Concomitant]
     Indication: PAIN
     Route: 048
  5. AMIODARONE HCL [Concomitant]
     Indication: ATRIAL FIBRILLATION
     Route: 048
  6. FUROSEMIDE [Concomitant]
     Indication: DRUG USE FOR UNKNOWN INDICATION
     Route: 048
  7. ISOPTIN [Concomitant]
     Indication: DRUG USE FOR UNKNOWN INDICATION
     Route: 048
  8. NEXIUM [Concomitant]
     Indication: DRUG USE FOR UNKNOWN INDICATION
     Route: 048
  9. PREVISCAN [Concomitant]
     Indication: DRUG USE FOR UNKNOWN INDICATION
     Route: 048
  10. RIVOTRIL [Concomitant]
     Indication: DRUG USE FOR UNKNOWN INDICATION
     Route: 048
  11. STILNOX [Concomitant]
     Indication: INSOMNIA
     Route: 048

REACTIONS (3)
  - AGRANULOCYTOSIS [None]
  - LUNG DISORDER [None]
  - WHITE BLOOD CELL COUNT DECREASED [None]
